FAERS Safety Report 5471782-5 (Version None)
Quarter: 2007Q3

REPORT INFORMATION
  Report Type: 
  Country: None (occurrence: None)
  Receive Date: 20070928
  Receipt Date: 20070917
  Transmission Date: 20080115
  Serious: Yes (Other)
  Sender: FDA-Public Use
  Company Number: US-PFIZER INC-2007078720

PATIENT
  Sex: Female
  Weight: 54.09 kg

DRUGS (8)
  1. CHANTIX [Suspect]
     Indication: SMOKING CESSATION THERAPY
     Dosage: TEXT:EVERYDAY
  2. ACTONEL [Concomitant]
     Indication: OSTEOPOROSIS
  3. SYNTHROID [Concomitant]
  4. GLUCOSAMINE [Concomitant]
  5. CALCIUM [Concomitant]
  6. VITAMINS [Concomitant]
  7. HYDROCODONE BITARTRATE [Concomitant]
     Indication: OSTEOPOROSIS
  8. TRAZODONE HCL [Concomitant]
     Dosage: FREQ:AS NEEDED

REACTIONS (4)
  - ABNORMAL DREAMS [None]
  - CATARACT OPERATION [None]
  - POOR VENOUS ACCESS [None]
  - VESSEL PUNCTURE SITE HAEMATOMA [None]
